FAERS Safety Report 5220174-2 (Version None)
Quarter: 2007Q1

REPORT INFORMATION
  Report Type: 
  Country: None (occurrence: None)
  Receive Date: 20061201
  Receipt Date: 20060720
  Transmission Date: 20070707
  Serious: No
  Sender: FDA-Public Use
  Company Number: 2006PV017960

PATIENT
  Age: 70 Year
  Sex: Female
  Weight: 114.76 kg

DRUGS (5)
  1. BYETTA [Suspect]
     Indication: DIABETES MELLITUS NON-INSULIN-DEPENDENT
     Dosage: SEE IMAGE
     Route: 058
     Dates: start: 20060531, end: 20060630
  2. BYETTA [Suspect]
     Indication: DIABETES MELLITUS NON-INSULIN-DEPENDENT
     Dosage: SEE IMAGE
     Route: 058
     Dates: start: 20060630
  3. METFORMIN HCL [Suspect]
     Indication: DRUG USE FOR UNKNOWN INDICATION
     Dosage: SEE IMAGE
     Dates: end: 20060101
  4. METFORMIN HCL [Suspect]
     Indication: DRUG USE FOR UNKNOWN INDICATION
     Dosage: SEE IMAGE
     Dates: start: 20060101, end: 20060601
  5. AMARYL [Concomitant]

REACTIONS (7)
  - DIARRHOEA [None]
  - DRUG INEFFECTIVE [None]
  - FEELING COLD [None]
  - NAUSEA [None]
  - NERVOUSNESS [None]
  - TREMOR [None]
  - WEIGHT DECREASED [None]
